FAERS Safety Report 18176016 (Version 2)
Quarter: 2020Q3

REPORT INFORMATION
  Report Type: Other
  Country: IT (occurrence: IT)
  Receive Date: 20200820
  Receipt Date: 20200916
  Transmission Date: 20201103
  Serious: Yes (Other)
  Sender: FDA-Public Use
  Company Number: IT-ROCHE-2662304

PATIENT
  Age: 24 Year
  Sex: Male

DRUGS (4)
  1. OMALIZUMAB. [Suspect]
     Active Substance: OMALIZUMAB
     Indication: VERNAL KERATOCONJUNCTIVITIS
     Route: 058
     Dates: start: 201703, end: 201809
  2. PREDNISONE. [Suspect]
     Active Substance: PREDNISONE
     Indication: VERNAL KERATOCONJUNCTIVITIS
     Route: 048
  3. PREDNISONE. [Suspect]
     Active Substance: PREDNISONE
     Route: 048
  4. PREDNISONE. [Suspect]
     Active Substance: PREDNISONE
     Route: 061

REACTIONS (2)
  - Vernal keratoconjunctivitis [Unknown]
  - Product use in unapproved indication [Unknown]
